FAERS Safety Report 11647438 (Version 1)
Quarter: 2015Q4

REPORT INFORMATION
  Report Type: Spontaneous
  Country: GB (occurrence: GB)
  Receive Date: 20151021
  Receipt Date: 20151021
  Transmission Date: 20160304
  Serious: Yes (Hospitalization)
  Sender: FDA-Public Use
  Company Number: GB-ACCORD-034451

PATIENT
  Age: 69 Year
  Sex: Female

DRUGS (17)
  1. METHOTREXATE [Suspect]
     Active Substance: METHOTREXATE
     Indication: PRODUCT USED FOR UNKNOWN INDICATION
     Dosage: ON A TUESDAY AT NIGHT.
     Route: 048
  2. E45 [Concomitant]
     Active Substance: LANOLIN\LIGHT MINERAL OIL\PARAFFIN
     Dosage: AS DIRECTED
  3. OMEPRAZOLE. [Concomitant]
     Active Substance: OMEPRAZOLE
  4. CYCLIZINE [Concomitant]
     Active Substance: CYCLIZINE
  5. LEFLUNOMIDE. [Suspect]
     Active Substance: LEFLUNOMIDE
     Indication: RHEUMATOID ARTHRITIS
  6. MST CONTINUS [Concomitant]
     Active Substance: MORPHINE SULFATE
  7. ORAMORPH [Concomitant]
     Active Substance: MORPHINE SULFATE
     Dosage: 10MG/5ML 2.5ML EVERY 4 TO 6 HOURLY.
  8. PARACETAMOL [Concomitant]
     Active Substance: ACETAMINOPHEN
  9. NITROFURANTOIN/NITROFURANTOIN SODIUM [Concomitant]
     Dates: start: 20150901
  10. CETIRIZINE [Concomitant]
     Active Substance: CETIRIZINE HYDROCHLORIDE
  11. FOLATE SODIUM/FOLIC ACID [Concomitant]
     Dosage: EXCEPT TUESDAY.
  12. SENNA [Concomitant]
     Active Substance: SENNA LEAF\SENNOSIDES\SENNOSIDES A AND B
     Dosage: 1-2 AT NIGHT.
  13. GABAPENTIN. [Concomitant]
     Active Substance: GABAPENTIN
  14. ADCAL-D3 [Concomitant]
     Active Substance: CALCIUM CARBONATE\CHOLECALCIFEROL
     Dosage: COLECALCIFEROL 400UNIT / CALCIUM CARBONATE 1.5G, LEMON
  15. SIMVASTATIN. [Concomitant]
     Active Substance: SIMVASTATIN
     Dosage: AT NIGHT
     Dates: start: 20150812
  16. BISOPROLOL [Concomitant]
     Active Substance: BISOPROLOL
  17. DOCUSATE/DOCUSATE CALCIUM/DOCUSATE POTASSIUM/DOCUSATE SODIUM [Concomitant]

REACTIONS (1)
  - Posterior reversible encephalopathy syndrome [Recovering/Resolving]

NARRATIVE: CASE EVENT DATE: 20150916
